FAERS Safety Report 10263276 (Version 1)
Quarter: 2014Q2

REPORT INFORMATION
  Report Type: Spontaneous
  Country: DK (occurrence: FR)
  Receive Date: 20140626
  Receipt Date: 20140626
  Transmission Date: 20141212
  Serious: Yes (Hospitalization)
  Sender: FDA-Public Use
  Company Number: FR-FRI-1000068485

PATIENT
  Age: 66 Year
  Sex: Female

DRUGS (16)
  1. ESCITALOPRAM [Suspect]
     Route: 048
  2. ESCITALOPRAM [Suspect]
     Dosage: OVERDOSE OF 40 MG ONCE
     Route: 048
  3. METFORMIN [Suspect]
     Route: 048
  4. METFORMIN [Suspect]
     Dosage: OVERDOSE OF 5 G ONCE
     Route: 048
  5. AMLOR [Suspect]
     Route: 048
  6. AMLOR [Suspect]
     Dosage: OVERDOSE OF 30 MG ONCE
     Route: 048
  7. TEMESTA [Suspect]
     Route: 048
  8. TEMESTA [Suspect]
     Dosage: OVERDOSE OF 35 MG ONCE
     Route: 048
  9. BROMAZEPAM [Suspect]
     Route: 048
  10. TERCIAN [Concomitant]
  11. NOVONORM [Concomitant]
  12. MICARDIS [Concomitant]
  13. BISOPROLOL [Concomitant]
     Route: 048
  14. BISOPROLOL [Concomitant]
     Dosage: OVERDOSE OF 40 MG ONCE
     Route: 048
  15. TAHOR [Concomitant]
     Route: 048
  16. TAHOR [Concomitant]
     Dosage: OVERDOSE OF 20 MG ONCE
     Route: 048

REACTIONS (5)
  - Coma [Recovered/Resolved]
  - Hypotension [Recovered/Resolved]
  - Bradycardia [Recovered/Resolved]
  - Hypoxia [Recovered/Resolved]
  - Intentional overdose [Recovered/Resolved]
